FAERS Safety Report 9935816 (Version 1)
Quarter: 2014Q1

REPORT INFORMATION
  Report Type: Spontaneous
  Country: US (occurrence: US)
  Receive Date: 20140228
  Receipt Date: 20140228
  Transmission Date: 20141002
  Serious: No
  Sender: FDA-Public Use
  Company Number: US-AMGEN-USASP2013070097

PATIENT
  Age: 73 Year
  Sex: Female
  Weight: 81.63 kg

DRUGS (5)
  1. ENBREL [Suspect]
     Indication: PRODUCT USED FOR UNKNOWN INDICATION
     Dosage: 50 MG/ML, UNK
     Route: 065
  2. GLIPIZIDE [Concomitant]
     Dosage: 5 MG, UNK
  3. LEVOTHYROXIN [Concomitant]
     Dosage: 25 MUG, UNK
  4. HYDROCODONE [Concomitant]
     Dosage: UNK
  5. HOMATROPIL [Concomitant]
     Dosage: UNK

REACTIONS (3)
  - Skin injury [Unknown]
  - Hyperhidrosis [Unknown]
  - Local swelling [Unknown]
